FAERS Safety Report 8163831-0 (Version None)
Quarter: 2012Q1

REPORT INFORMATION
  Report Type: 
  Country: None (occurrence: None)
  Receive Date: 20120224
  Receipt Date: 20120215
  Transmission Date: 20120608
  Serious: Yes (Hospitalization, Other)
  Sender: FDA-Public Use
  Company Number: PHHY2011CA82377

PATIENT
  Sex: Female

DRUGS (6)
  1. NEXIUM [Concomitant]
  2. FOLIC ACID [Concomitant]
  3. CREON [Concomitant]
  4. SANDOSTATIN LAR [Suspect]
     Indication: PANCREATIC CYST
     Dosage: 20 MG EVERY 4 WEEKS
     Route: 030
     Dates: start: 20110302, end: 20110811
  5. EFFEXOR [Concomitant]
  6. SYNTHROID [Concomitant]

REACTIONS (5)
  - PANCREATITIS ACUTE [None]
  - WEIGHT DECREASED [None]
  - NAUSEA [None]
  - DRUG INEFFECTIVE [None]
  - DECREASED APPETITE [None]
